FAERS Safety Report 4448040-0 (Version None)
Quarter: 2004Q3

REPORT INFORMATION
  Report Type: 
  Country: None (occurrence: None)
  Receive Date: 20040817
  Receipt Date: 20040219
  Transmission Date: 20050211
  Serious: Yes (Hospitalization)
  Sender: FDA-Public Use
  Company Number: MEDI-0001504

PATIENT
  Age: 15 Month
  Sex: Male
  Weight: 8.6183 kg

DRUGS (1)
  1. SYNAGIS [Suspect]
     Indication: ANTIVIRAL PROPHYLAXIS
     Dosage: 1 IN 30 D, INTRAMUSCULAR
     Route: 030
     Dates: start: 20031107, end: 20040101

REACTIONS (1)
  - RESPIRATORY SYNCYTIAL VIRUS INFECTION [None]
